FAERS Safety Report 7187782-3 (Version None)
Quarter: 2010Q4

REPORT INFORMATION
  Report Type: 
  Country: None (occurrence: None)
  Receive Date: 20101222
  Receipt Date: 20100708
  Transmission Date: 20110411
  Serious: No
  Sender: FDA-Public Use
  Company Number: US-AMGEN-KDL423010

PATIENT

DRUGS (11)
  1. ENBREL [Suspect]
     Indication: PRODUCT USED FOR UNKNOWN INDICATION
     Dosage: 50 MG, QWK
     Route: 058
  2. AVALIDE [Concomitant]
     Dosage: UNK UNK, UNK
  3. ROSUVASTATIN CALCIUM [Concomitant]
     Dosage: 5 MG, UNK
  4. MAGNESIUM CITRATE [Concomitant]
     Dosage: UNK UNK, UNK
  5. VITAMIN B COMPLEX [Concomitant]
     Dosage: UNK UNK, UNK
  6. MAGNESIUM [Concomitant]
     Dosage: 250 MG, UNK
  7. ERGOCALCIFEROL [Concomitant]
     Dosage: 1000 IU, UNK
  8. GLUCOSAMINE [Concomitant]
     Dosage: 1000 MG, UNK
  9. HERBAL SUPPLEMENT [Concomitant]
  10. UNSPECIFIED NUTRITIONAL SUPPLEMENT [Concomitant]
     Dosage: 100 MG, UNK
  11. MAGNESIUM [Concomitant]
     Dosage: 250 MG, UNK

REACTIONS (3)
  - ARTHRALGIA [None]
  - INJECTION SITE ERYTHEMA [None]
  - INJECTION SITE PRURITUS [None]
